FAERS Safety Report 6236668-7 (Version None)
Quarter: 2009Q2

REPORT INFORMATION
  Report Type: 
  Country: None (occurrence: None)
  Receive Date: 20090619
  Receipt Date: 20090116
  Transmission Date: 20091009
  Serious: No
  Sender: FDA-Public Use
  Company Number: US-ASTRAZENECA-2009UW01733

PATIENT
  Age: 514 Month
  Sex: Female

DRUGS (3)
  1. ATACAND HCT [Suspect]
     Route: 048
     Dates: end: 20081001
  2. TOPROL-XL [Suspect]
     Route: 048
     Dates: end: 20090101
  3. CRESTOR [Suspect]
     Route: 048

REACTIONS (2)
  - BLOOD PRESSURE INCREASED [None]
  - JOINT SWELLING [None]
